FAERS Safety Report 20822698 (Version 2)
Quarter: 2025Q4

REPORT INFORMATION
  Report Type: Spontaneous
  Country: US (occurrence: None)
  Receive Date: 20220512
  Receipt Date: 20251024
  Transmission Date: 20260119
  Serious: No
  Sender: INCYTE
  Company Number: US-INCYTE CORPORATION-2022IN004404

PATIENT
  Age: 67 Year

DRUGS (3)
  1. JAKAFI [Suspect]
     Active Substance: RUXOLITINIB
     Indication: Product used for unknown indication
     Dosage: 5 MILLIGRAM, BID
  2. JAKAFI [Suspect]
     Active Substance: RUXOLITINIB
     Dosage: 10 MILLIGRAM, QD
  3. ATORVASTATIN [Suspect]
     Active Substance: ATORVASTATIN
     Indication: Product used for unknown indication
     Dosage: UNK
     Route: 065

REACTIONS (5)
  - Musculoskeletal stiffness [Unknown]
  - Pain in extremity [Unknown]
  - Arthritis [Unknown]
  - Product prescribing error [Unknown]
  - Muscle spasms [Unknown]
